FAERS Safety Report 24957933 (Version 1)
Quarter: 2025Q1

REPORT INFORMATION
  Report Type: Spontaneous
  Country: CN (occurrence: CN)
  Receive Date: 20250212
  Receipt Date: 20250212
  Transmission Date: 20250409
  Serious: Yes (Life-Threatening, Hospitalization)
  Sender: ROCHE
  Company Number: None

PATIENT
  Age: 54 Year
  Sex: Male

DRUGS (4)
  1. MYCOPHENOLATE MOFETIL [Suspect]
     Active Substance: MYCOPHENOLATE MOFETIL
     Indication: Prophylaxis against transplant rejection
     Route: 065
     Dates: end: 20221011
  2. TACROLIMUS [Suspect]
     Active Substance: TACROLIMUS
     Indication: Prophylaxis against transplant rejection
     Route: 065
     Dates: end: 20221011
  3. PREDNISONE [Suspect]
     Active Substance: PREDNISONE
     Indication: Immunosuppressant drug therapy
     Dosage: FOR THE FIRST 3 MONTHS
     Route: 065
     Dates: end: 202207
  4. PREDNISONE [Suspect]
     Active Substance: PREDNISONE
     Dosage: PROGRESSIVELY TAPERED
     Route: 065
     Dates: start: 202207, end: 20221011

REACTIONS (5)
  - Pneumonia pneumococcal [Unknown]
  - Central nervous system infection [Not Recovered/Not Resolved]
  - Hantaviral infection [Not Recovered/Not Resolved]
  - Pneumonia [Unknown]
  - Coma [Not Recovered/Not Resolved]

NARRATIVE: CASE EVENT DATE: 20221015
